FAERS Safety Report 10209833 (Version 1)
Quarter: 2014Q2

REPORT INFORMATION
  Report Type: Spontaneous
  Country: JP (occurrence: JP)
  Receive Date: 20140602
  Receipt Date: 20140602
  Transmission Date: 20141212
  Serious: Yes (Hospitalization)
  Sender: FDA-Public Use
  Company Number: JP-ACCORD-023921

PATIENT
  Age: 48 Year
  Sex: Female

DRUGS (3)
  1. GEMCITABINE/GEMCITABINE HYDROCHLORIDE [Suspect]
     Indication: METASTASES TO SKIN
     Dosage: DAYS 1 AND 8, EVERY 21 DAYS
  2. PACLITAXEL/PACLITAXEL LIPOSOME [Suspect]
     Indication: METASTASES TO SKIN
     Dosage: DAY 1, 8 AND 15, EVERY 21 WEEKS
  3. BEVACIZUMAB [Suspect]
     Indication: METASTASES TO SKIN
     Dosage: DAY 1 AND 15, EVERY 21 WEEKS

REACTIONS (8)
  - Impaired healing [Recovering/Resolving]
  - Disease progression [Not Recovered/Not Resolved]
  - Ulcer haemorrhage [Recovered/Resolved]
  - Metastases to skin [None]
  - Malignant neoplasm progression [None]
  - Arterial haemorrhage [None]
  - Pulmonary mass [None]
  - Breast mass [None]
